FAERS Safety Report 19002975 (Version 1)
Quarter: 2021Q1

REPORT INFORMATION
  Report Type: Spontaneous
  Country: US (occurrence: US)
  Receive Date: 20210312
  Receipt Date: 20210312
  Transmission Date: 20210420
  Serious: Yes (Life-Threatening, Hospitalization)
  Sender: FDA-Public Use
  Company Number: US-MYLANLABS-2021M1014877

PATIENT
  Age: 46 Year
  Sex: Male

DRUGS (3)
  1. ETOMIDATE. [Suspect]
     Active Substance: ETOMIDATE
     Indication: ENDOTRACHEAL INTUBATION
     Dosage: 20 MILLIGRAM
     Route: 065
  2. FENTANYL. [Suspect]
     Active Substance: FENTANYL
     Indication: ENDOTRACHEAL INTUBATION
     Dosage: 50 MICROGRAM
     Route: 065
  3. SUCCINYLCHOLINE                    /00057701/ [Suspect]
     Active Substance: SUCCINYLCHOLINE
     Indication: ENDOTRACHEAL INTUBATION
     Dosage: 100 MILLIGRAM; INTRAVENOUS (NOT SPECIFIED)
     Route: 042

REACTIONS (3)
  - Multiple organ dysfunction syndrome [Recovering/Resolving]
  - Hyperthermia malignant [Recovering/Resolving]
  - Haemodynamic instability [Recovering/Resolving]
